FAERS Safety Report 6410046-X (Version None)
Quarter: 2009Q4

REPORT INFORMATION
  Report Type: 
  Country: None (occurrence: None)
  Receive Date: 20091022
  Receipt Date: 20090921
  Transmission Date: 20100525
  Serious: No
  Sender: FDA-Public Use
  Company Number: US-BAYER-200933817NA

PATIENT
  Age: 27 Year
  Sex: Female
  Weight: 64 kg

DRUGS (3)
  1. MIRENA [Suspect]
     Indication: CONTRACEPTION
     Dosage: CONTINUOUS.. JULY IS AN ESTIMATED START DATE FOR MIRENA
     Route: 015
     Dates: start: 20090701
  2. WELLBUTRIN [Concomitant]
  3. RITALIN [Concomitant]

REACTIONS (2)
  - ACNE [None]
  - WEIGHT INCREASED [None]
